FAERS Safety Report 20880561 (Version 1)
Quarter: 2022Q2

REPORT INFORMATION
  Report Type: Spontaneous
  Country: US (occurrence: US)
  Receive Date: 20220526
  Receipt Date: 20220526
  Transmission Date: 20220720
  Serious: No
  Sender: FDA-Public Use
  Company Number: US-BRAINTREE LABORATORIES, INC.-2021BTE00338

PATIENT
  Age: 88 Year
  Sex: Female

DRUGS (4)
  1. PEG-3350, SODIUM CHLORIDE, SODIUM BICARBONATE AND POTASSIUM CHLORIDE [Suspect]
     Active Substance: POLYETHYLENE GLYCOL 3350\POTASSIUM CHLORIDE\SODIUM BICARBONATE\SODIUM CHLORIDE
     Indication: Colonoscopy
     Dosage: 2 L, 1X
     Route: 048
     Dates: start: 20210503, end: 20210503
  2. DULCOLAX NOS [Suspect]
     Active Substance: BISACODYL OR DOCUSATE SODIUM
     Indication: Colonoscopy
     Dosage: 4 DOSAGE FORM, ONCE
     Dates: start: 20210503, end: 20210503
  3. QUINAPRIL [Concomitant]
     Active Substance: QUINAPRIL
  4. PRAVASTATIN [Concomitant]
     Active Substance: PRAVASTATIN

REACTIONS (6)
  - Chills [Recovered/Resolved]
  - Proctalgia [Recovered/Resolved]
  - Nausea [Not Recovered/Not Resolved]
  - Vomiting [Recovered/Resolved]
  - Abdominal distension [Recovered/Resolved]
  - Wrong technique in product usage process [Recovered/Resolved]

NARRATIVE: CASE EVENT DATE: 20210503
